FAERS Safety Report 8317568-5 (Version None)
Quarter: 2012Q2

REPORT INFORMATION
  Report Type: 
  Country: None (occurrence: None)
  Receive Date: 20120427
  Receipt Date: 20110422
  Transmission Date: 20120825
  Serious: No
  Sender: FDA-Public Use
  Company Number: US-GLAXOSMITHKLINE-A0924224A

PATIENT
  Age: 54 Year
  Sex: Female
  Weight: 66.4 kg

DRUGS (2)
  1. TAXOL [Concomitant]
  2. ZOFRAN [Suspect]
     Indication: PROPHYLAXIS OF NAUSEA AND VOMITING
     Dosage: 32MG SINGLE DOSE
     Route: 042
     Dates: start: 20110401, end: 20110422

REACTIONS (4)
  - MYALGIA [None]
  - CHEST PAIN [None]
  - NEURALGIA [None]
  - PAIN IN EXTREMITY [None]
